FAERS Safety Report 8917533 (Version 3)
Quarter: 2013Q2

REPORT INFORMATION
  Report Type: Report from Study
  Country: JP (occurrence: JP)
  Receive Date: 20121120
  Receipt Date: 20130628
  Transmission Date: 20140414
  Serious: Yes (Hospitalization)
  Sender: FDA-Public Use
  Company Number: JP-009507513-1210JPN006043

PATIENT
  Age: 61 Year
  Sex: Female
  Weight: 47 kg

DRUGS (28)
  1. PEGINTRON [Suspect]
     Indication: CHRONIC HEPATITIS C
     Dosage: 1.5 MICROGRAM PER KILOGRAM, QW
     Route: 058
     Dates: start: 20120801, end: 20120829
  2. PEGINTRON [Suspect]
     Dosage: 1.5 MICROGRAM PER KILOGRAM, QW
     Route: 058
     Dates: start: 20120912, end: 20120926
  3. PEGINTRON [Suspect]
     Dosage: 1.5 MICROGRAM PER KILOGRAM, QW
     Route: 058
     Dates: start: 20121009
  4. REBETOL [Suspect]
     Indication: CHRONIC HEPATITIS C
     Dosage: 600 MG, QD
     Route: 048
     Dates: start: 20120801, end: 20120814
  5. REBETOL [Suspect]
     Dosage: 400 MG, QD
     Route: 048
     Dates: start: 20120815, end: 20120828
  6. REBETOL [Suspect]
     Dosage: 200 MG, QD
     Route: 048
     Dates: start: 20120829, end: 20120902
  7. REBETOL [Suspect]
     Dosage: 200 MG, QD
     Route: 048
     Dates: start: 20120912, end: 20121002
  8. REBETOL [Suspect]
     Dosage: 200 MG, QD
     Route: 048
     Dates: start: 20121009, end: 20121016
  9. REBETOL [Suspect]
     Dosage: 400 MG, QD
     Route: 048
     Dates: start: 20121017, end: 20121023
  10. REBETOL [Suspect]
     Dosage: 600 MG, QD
     Route: 048
     Dates: start: 20121024
  11. TELAVIC [Suspect]
     Indication: CHRONIC HEPATITIS C
     Dosage: 2250 MG, QD
     Route: 048
     Dates: start: 20120801, end: 20120821
  12. TELAVIC [Suspect]
     Dosage: 1500 MG, QD
     Route: 048
     Dates: start: 20120822, end: 20120902
  13. LOXONIN [Concomitant]
     Indication: PROPHYLAXIS
     Dosage: 180 MG, QD
     Route: 048
     Dates: start: 20120801, end: 20120810
  14. PRIMPERAN [Concomitant]
     Dosage: 15 MG, QD
     Route: 048
     Dates: start: 20120803, end: 20120824
  15. TALION (BEPOTASTINE BESYLATE) [Concomitant]
     Dosage: 20 MG, QD
     Route: 048
     Dates: start: 20120814
  16. NERISONA [Concomitant]
     Dosage: UNK,Q.S/DAY
     Route: 061
     Dates: start: 20120814
  17. PREDNISOLONE [Concomitant]
     Dosage: 15 MG, QD
     Route: 048
     Dates: start: 20120817, end: 20120822
  18. PREDNISOLONE [Concomitant]
     Dosage: 10 MG, QD
     Route: 048
     Dates: start: 20120823, end: 20120825
  19. PREDNISOLONE [Concomitant]
     Dosage: 20 MG, QD
     Route: 048
     Dates: start: 20120826, end: 20120826
  20. PREDNISOLONE [Concomitant]
     Dosage: 30 MG, QD
     Route: 048
     Dates: start: 20120827, end: 20120831
  21. PREDNISOLONE [Concomitant]
     Dosage: 15 MG, QD
     Route: 048
     Dates: start: 20120901, end: 20120906
  22. PREDNISOLONE [Concomitant]
     Dosage: 10 MG, QD
     Route: 048
     Dates: start: 20120907, end: 20120907
  23. KARY UNI [Concomitant]
     Indication: CATARACT
     Dosage: DAILY DOSE UNKNOWN,Q.S/DAY. FORMULATION: EED
     Route: 031
     Dates: start: 20120903
  24. KARY UNI [Concomitant]
     Dosage: DAILY DOSE UNKNOWN,Q.S/DAY. FORMULATION: EED
     Route: 031
     Dates: start: 20120921
  25. MAGMITT [Concomitant]
     Dosage: 990 MG, QD
     Route: 048
     Dates: start: 20120907
  26. LAXOBERON [Concomitant]
     Indication: BOWEL PREPARATION
     Dosage: 10 ML, QD, FORMULATION: SOL
     Route: 048
     Dates: start: 20121009, end: 20121009
  27. MAGCOROL [Concomitant]
     Indication: BOWEL PREPARATION
     Dosage: 100 G, QD. FORMULATION: POR
     Route: 048
     Dates: start: 20121009, end: 20121009
  28. [COMPOSITION UNSPECIFIED] [Concomitant]
     Dosage: 150 MG, QD
     Route: 048
     Dates: start: 20120804, end: 20120824

REACTIONS (2)
  - Iron deficiency [Recovered/Resolved]
  - Haemoglobin decreased [Recovering/Resolving]
